FAERS Safety Report 6295018-0 (Version None)
Quarter: 2009Q3

REPORT INFORMATION
  Report Type: 
  Country: None (occurrence: None)
  Receive Date: 20090803
  Receipt Date: 20090729
  Transmission Date: 20100115
  Serious: Yes (Hospitalization)
  Sender: FDA-Public Use
  Company Number: US-BRISTOL-MYERS SQUIBB COMPANY-14721153

PATIENT
  Age: 69 Year
  Sex: Male

DRUGS (4)
  1. CARBOPLATIN [Suspect]
     Indication: NON-SMALL CELL LUNG CANCER
     Dosage: LAST DOSE PRIOR TO ONSET OF THE EVENT-507 MG ON 04JUN09
     Route: 042
     Dates: start: 20090514, end: 20090604
  2. ABRAXANE [Suspect]
     Indication: NON-SMALL CELL LUNG CANCER
     Dosage: LAST DOSE PRIOR TO ONSET OF THE EVENT-603 MG ON 04JUN09
     Route: 042
     Dates: start: 20090514, end: 20090604
  3. LISINOPRIL [Concomitant]
  4. HYDROCHLOROTHIAZIDE [Concomitant]
     Indication: HYPERTENSION

REACTIONS (5)
  - DEHYDRATION [None]
  - FATIGUE [None]
  - FEBRILE NEUTROPENIA [None]
  - HYPONATRAEMIA [None]
  - HYPOTENSION [None]
